FAERS Safety Report 4469978-4 (Version None)
Quarter: 2004Q4

REPORT INFORMATION
  Report Type: 
  Country: None (occurrence: None)
  Receive Date: 20041008
  Receipt Date: 20040929
  Transmission Date: 20050328
  Serious: Yes (Other)
  Sender: FDA-Public Use
  Company Number: PHNU2004DE03420

PATIENT
  Sex: Female

DRUGS (1)
  1. DESFERAL [Suspect]
     Dosage: UNKNOWN
     Route: 065

REACTIONS (1)
  - METABOLIC ACIDOSIS [None]
